FAERS Safety Report 24967643 (Version 1)
Quarter: 2025Q1

REPORT INFORMATION
  Report Type: Report from Study
  Country: US (occurrence: US)
  Receive Date: 20250214
  Receipt Date: 20250214
  Transmission Date: 20250408
  Serious: Yes (Other)
  Sender: DECIPHERA PHARMACEUTICALS
  Company Number: US-DECIPHERA PHARMACEUTICALS LLC-2025US000099

PATIENT
  Age: 74 Year
  Sex: Male

DRUGS (2)
  1. QINLOCK [Suspect]
     Active Substance: RIPRETINIB
     Indication: Soft tissue sarcoma
     Dosage: 100 MILLIGRAM, QD
     Route: 048
     Dates: start: 20241113, end: 2025
  2. QINLOCK [Suspect]
     Active Substance: RIPRETINIB
     Indication: Malignant connective tissue neoplasm

REACTIONS (2)
  - Squamous cell carcinoma of skin [Unknown]
  - Product use in unapproved indication [Unknown]
